FAERS Safety Report 7954193-X (Version None)
Quarter: 2011Q4

REPORT INFORMATION
  Report Type: 
  Country: None (occurrence: None)
  Receive Date: 20111202
  Receipt Date: 20111122
  Transmission Date: 20120403
  Serious: Yes (Other)
  Sender: FDA-Public Use
  Company Number: US-ROCHE-GNE262601

PATIENT
  Sex: Female

DRUGS (10)
  1. ALBUTEROL [Concomitant]
     Indication: ASTHMA
     Dosage: UNK
  2. PROVENTIL [Concomitant]
     Indication: ASTHMA
     Dosage: UNK
  3. CONCOMITANT DRUG [Concomitant]
     Indication: HYPERTENSION
     Dosage: UNK
  4. OMALIZUMAB [Suspect]
     Dosage: 225 MG, Q2W
     Dates: start: 20090904, end: 20091023
  5. CRESTOR [Concomitant]
     Indication: HYPERCHOLESTEROLAEMIA
     Dosage: UNK
  6. MULTI-VITAMINS [Concomitant]
     Indication: PREGNANCY
  7. ZOCOR [Concomitant]
     Indication: BLOOD CHOLESTEROL INCREASED
  8. OMALIZUMAB [Suspect]
     Indication: ASTHMA
     Dosage: 300 MG, UNK
     Dates: start: 20080416, end: 20080515
  9. SINGULAIR [Concomitant]
     Indication: HYPERSENSITIVITY
     Dosage: UNK
  10. ADVAIR DISKUS 100/50 [Concomitant]
     Indication: ASTHMA
     Dosage: UNK

REACTIONS (2)
  - PRE-ECLAMPSIA [None]
  - MATERNAL EXPOSURE DURING PREGNANCY [None]
